FAERS Safety Report 7741050-7 (Version None)
Quarter: 2011Q3

REPORT INFORMATION
  Report Type: 
  Country: None (occurrence: None)
  Receive Date: 20110909
  Receipt Date: 20110831
  Transmission Date: 20111222
  Serious: Yes (Hospitalization, Other)
  Sender: FDA-Public Use
  Company Number: JP-CEPHALON-2011004724

PATIENT
  Age: 86 Year
  Sex: Male

DRUGS (3)
  1. SULFAMETHIZOLE TAB [Concomitant]
     Dates: start: 20110526
  2. TREANDA [Suspect]
     Indication: MANTLE CELL LYMPHOMA RECURRENT
     Route: 042
     Dates: start: 20110526
  3. FLUCONAZOLE [Concomitant]
     Dates: start: 20110526

REACTIONS (3)
  - PYREXIA [None]
  - NEUTROPHIL COUNT DECREASED [None]
  - CYTOMEGALOVIRUS INFECTION [None]
